FAERS Safety Report 9058225 (Version 1)
Quarter: 2013Q1

REPORT INFORMATION
  Report Type: Spontaneous
  Country: US (occurrence: None)
  Receive Date: 20130204
  Receipt Date: 20130204
  Transmission Date: 20140127
  Serious: Yes (Disabling)
  Sender: FDA-Public Use
  Company Number: None

PATIENT
  Age: 41 Year
  Sex: Female

DRUGS (5)
  1. LAMOTRIGINE [Suspect]
     Indication: MAJOR DEPRESSION
     Route: 048
     Dates: start: 2005, end: 2009
  2. ANTIDEPRESSANTS [Concomitant]
  3. BUPROPION [Concomitant]
  4. PROZAC [Concomitant]
  5. ABILIFY [Concomitant]

REACTIONS (4)
  - Migraine [None]
  - Feeling abnormal [None]
  - Product substitution issue [None]
  - Unevaluable event [None]
